FAERS Safety Report 8531043 (Version 2)
Quarter: 2012Q4

REPORT INFORMATION
  Report Type: 
  Country: US (occurrence: US)
  Receive Date: 20120426
  Receipt Date: 20120830
  Transmission Date: 20130627
  Serious: Yes (Other)
  Sender: FDA-Public Use
  Company Number: US-BAYER-2012-039203

PATIENT
  Age: 41 Year
  Sex: Female
  Weight: 155 kg

DRUGS (5)
  1. YAZ [Suspect]
     Indication: CONTRACEPTION
     Dosage: UNK
     Dates: start: 200709, end: 200808
  2. AZITHROMYCIN [Concomitant]
     Dosage: 250 mg, UNK
     Route: 048
  3. GLYBURIDE [Concomitant]
     Indication: DIABETES MELLITUS
     Dosage: 5 mg, UNK
     Route: 048
  4. GLIPIZIDE [Concomitant]
     Indication: DIABETES MELLITUS
     Dosage: 5 mg, UNK
     Route: 048
     Dates: start: 20090508
  5. PROMETHAZINE [Concomitant]
     Dosage: 25 mg, UNK
     Route: 048

REACTIONS (3)
  - Cholelithiasis [None]
  - Injury [None]
  - Pain [None]
